FAERS Safety Report 19911626 (Version 1)
Quarter: 2021Q4

REPORT INFORMATION
  Report Type: Spontaneous
  Country: US (occurrence: US)
  Receive Date: 20211001
  Receipt Date: 20211001
  Transmission Date: 20220303
  Serious: No
  Sender: FDA-Public Use
  Company Number: None

PATIENT
  Age: 34 Year
  Sex: Male
  Weight: 78.93 kg

DRUGS (1)
  1. TRIKAFTA [Suspect]
     Active Substance: ELEXACAFTOR\IVACAFTOR\TEZACAFTOR
     Indication: Cystic fibrosis
     Dosage: 100/50/75/150MG  2 ORANGE TABS IN  AM AND 1 BLUE TAB IN PM ORAL
     Route: 048
     Dates: start: 20191211

REACTIONS (1)
  - Lower respiratory tract infection [None]

NARRATIVE: CASE EVENT DATE: 20210927
